FAERS Safety Report 4804448-2 (Version None)
Quarter: 2005Q4

REPORT INFORMATION
  Report Type: 
  Country: None (occurrence: None)
  Receive Date: 20051020
  Receipt Date: 20051011
  Transmission Date: 20060501
  Serious: Yes (Hospitalization, Other)
  Sender: FDA-Public Use
  Company Number: 2005AP05331

PATIENT
  Age: 53 Year
  Sex: Male

DRUGS (1)
  1. OMEPRAZOLE [Suspect]
     Route: 048
     Dates: start: 20050919, end: 20050921

REACTIONS (1)
  - WHITE BLOOD CELL COUNT INCREASED [None]
